FAERS Safety Report 14968096 (Version 6)
Quarter: 2019Q2

REPORT INFORMATION
  Report Type: Report from Study
  Country: BE (occurrence: BE)
  Receive Date: 20180604
  Receipt Date: 20190612
  Transmission Date: 20190711
  Serious: Yes (Hospitalization)
  Sender: FDA-Public Use
  Company Number: BE-ACCORD-067620

PATIENT
  Age: 74 Year
  Sex: Female
  Weight: 53 kg

DRUGS (13)
  1. LEUCOVORIN. [Suspect]
     Active Substance: LEUCOVORIN
     Indication: COLORECTAL CANCER METASTATIC
     Dosage: 3748 MG, 2X A WEEK, ALSO RECEIVED 7496 MG DOSE FROM 22-AUG-2017.
     Route: 042
     Dates: start: 20170823
  2. AVASTIN [Suspect]
     Active Substance: BEVACIZUMAB
     Indication: COLORECTAL CANCER METASTATIC
     Dosage: 253 MG, 2X A WEEK
     Route: 042
     Dates: start: 20170823
  3. TRAMADOL. [Concomitant]
     Active Substance: TRAMADOL
     Indication: PRODUCT USED FOR UNKNOWN INDICATION
     Dates: start: 201702
  4. COVERSYL COMP [Concomitant]
     Active Substance: INDAPAMIDE\PERINDOPRIL
     Dosage: START DATE;OCT-2016
     Route: 065
     Dates: start: 201611
  5. BEVACIZUMAB. [Suspect]
     Active Substance: BEVACIZUMAB
     Indication: COLORECTAL CANCER METASTATIC
     Dosage: (253 MG 2X A WEEK)
     Route: 042
     Dates: start: 20170822, end: 2017
  6. PARACETAMOL [Concomitant]
     Active Substance: ACETAMINOPHEN
     Indication: CONTUSION
     Dosage: 23-OCT-2017,11-JUN-2018, 22-OCT-2017,10-JUN-2018.
     Route: 065
     Dates: start: 201702
  7. OMEPRAZOLE. [Concomitant]
     Active Substance: OMEPRAZOLE
     Indication: PROPHYLAXIS
     Route: 065
     Dates: start: 20171101
  8. LYRICA [Concomitant]
     Active Substance: PREGABALIN
     Route: 065
     Dates: start: 20170927
  9. ZALDIAR [Concomitant]
     Active Substance: ACETAMINOPHEN\TRAMADOL HYDROCHLORIDE
     Indication: PRODUCT USED FOR UNKNOWN INDICATION
     Route: 065
     Dates: start: 201702
  10. PEGYLATED LIPOSOMAL IRINOTECAN [Suspect]
     Active Substance: IRINOTECAN HYDROCHLORIDE
     Indication: COLORECTAL CANCER METASTATIC
     Dosage: 281 MG, 2X A WEEK
     Route: 042
     Dates: start: 20170823
  11. FLUOROURACIL. [Suspect]
     Active Substance: FLUOROURACIL
     Indication: COLORECTAL CANCER METASTATIC
     Dosage: 3748 MG, 2X A WEEK, ALSO RECEIVED 7496 MG DOSE FROM 22-AUG-2017 TO 2017.
     Route: 042
     Dates: start: 20170823
  12. IRINOTECAN [Suspect]
     Active Substance: IRINOTECAN
     Indication: COLORECTAL CANCER METASTATIC
     Dosage: 281 MG, 2X A WEEK, ALSO RECEIVED AS 562 MG DOSE FROM 22-AUG-2017.
     Route: 042
     Dates: start: 20170823
  13. ULTIBRO [Concomitant]
     Active Substance: GLYCOPYRRONIUM\INDACATEROL
     Route: 065
     Dates: start: 20150316

REACTIONS (9)
  - Contusion [Not Recovered/Not Resolved]
  - Gastrointestinal stoma complication [Recovered/Resolved]
  - Proctalgia [Not Recovered/Not Resolved]
  - Anaemia [Not Recovered/Not Resolved]
  - Diarrhoea [Not Recovered/Not Resolved]
  - Fatigue [Not Recovered/Not Resolved]
  - Lacrimation increased [Not Recovered/Not Resolved]
  - Stomatitis [Not Recovered/Not Resolved]
  - Inappropriate schedule of product administration [Unknown]

NARRATIVE: CASE EVENT DATE: 20170901
